FAERS Safety Report 5174813-5 (Version None)
Quarter: 2006Q4

REPORT INFORMATION
  Report Type: 
  Country: None (occurrence: None)
  Receive Date: 20061206
  Receipt Date: 20061128
  Transmission Date: 20070319
  Serious: Yes (Hospitalization)
  Sender: FDA-Public Use
  Company Number: 2006054255

PATIENT
  Age: 76 Year
  Sex: Female
  Weight: 67 kg

DRUGS (20)
  1. SOLU-MEDROL [Suspect]
     Dosage: 40 MG INTRAVENOUS
     Route: 042
     Dates: start: 20051031, end: 20051106
  2. TRAMADOL HCL [Suspect]
     Dosage: 100 MG, ORAL
     Route: 048
     Dates: start: 20051031, end: 20051115
  3. PANTOPRAZOLE SODIUM [Suspect]
     Dosage: 20 MG, ORAL
     Route: 048
     Dates: start: 20050922, end: 20051115
  4. ALTIM (CORTIVAZOL) [Suspect]
     Dosage: INTRAVENOUS
     Route: 042
     Dates: start: 20050930, end: 20051101
  5. TETRAZEPAM (TETRAZEPAM) [Suspect]
     Dosage: 50 MG, ORAL
     Route: 048
     Dates: start: 20051031, end: 20051115
  6. COAPROVEL (HYDROCHLOROTHIAZIDE, IRBESARTAN) [Suspect]
     Dosage: 1 IN 1 D, ORAL
     Route: 048
     Dates: start: 20040615, end: 20051214
  7. VENLAFAXINE HYDROCHLORIDE [Concomitant]
  8. ANETHOLE TRITHIONE [Concomitant]
  9. SELEGILINE HYDROCHLORIDE [Concomitant]
  10. CLONAZEPAM [Concomitant]
  11. FUROSEMIDE [Concomitant]
  12. DILTIAZEM HYDROCHLORIDE [Concomitant]
  13. MACROGOL [Concomitant]
  14. DIALGIREX (DEXTROPROPOXYPHENE HYDROCHLORIDE, PARACETAMOL) [Concomitant]
  15. ACETAMINOPHEN [Concomitant]
  16. CALCITONIN-SALMON [Concomitant]
  17. DOMPERIDONE [Concomitant]
  18. LAMALINE (CAFFEINE, OPIUM TINCTURE, PARACETAMOL) [Concomitant]
  19. ALL OTHER THERAPEUTIC PRODUCTS [Concomitant]
  20. HEXABRIX [Concomitant]

REACTIONS (6)
  - NORMOCHROMIC NORMOCYTIC ANAEMIA [None]
  - SJOGREN'S SYNDROME [None]
  - SYSTEMIC LUPUS ERYTHEMATOSUS [None]
  - SYSTEMIC LUPUS ERYTHEMATOSUS RASH [None]
  - THERAPY NON-RESPONDER [None]
  - TOXIC SKIN ERUPTION [None]
